FAERS Safety Report 22050098 (Version 2)
Quarter: 2023Q1

REPORT INFORMATION
  Report Type: Spontaneous
  Country: US (occurrence: US)
  Receive Date: 20230301
  Receipt Date: 20230309
  Transmission Date: 20230417
  Serious: No
  Sender: FDA-Public Use
  Company Number: US-SA-SAC20230228001015

PATIENT
  Sex: Male

DRUGS (16)
  1. ARAVA [Suspect]
     Active Substance: LEFLUNOMIDE
     Indication: Product used for unknown indication
     Dosage: UNK
  2. ECOTRIN [Concomitant]
     Active Substance: ASPIRIN
     Dosage: UNK
  3. BIOTIN [Concomitant]
     Active Substance: BIOTIN
     Dosage: UNK
  4. ZINC [Concomitant]
     Active Substance: ZINC
     Dosage: UNK
  5. FOLVITE [Concomitant]
     Active Substance: FOLIC ACID
     Dosage: UNK
  6. MOBIC [Concomitant]
     Active Substance: MELOXICAM
     Dosage: UNK
  7. ZOFRAN [Concomitant]
     Active Substance: ONDANSETRON HYDROCHLORIDE
     Dosage: UNK
  8. DELTASONE [Concomitant]
     Active Substance: PREDNISONE
     Dosage: UNK
  9. ZINCATE [Concomitant]
     Dosage: UNK
  10. ZOVIRAX [Concomitant]
     Active Substance: ACYCLOVIR
     Dosage: UNK
  11. LIDOCAINE [Concomitant]
     Active Substance: LIDOCAINE
     Dosage: UNK
  12. METHYLPREDNISOLONE ACETATE [Concomitant]
     Active Substance: METHYLPREDNISOLONE ACETATE
     Dosage: UNK
  13. COPPER [Concomitant]
     Active Substance: COPPER
     Dosage: UNK
  14. CALCIUM ASCORBATE [Concomitant]
     Active Substance: CALCIUM ASCORBATE
     Dosage: UNK
  15. VITAMIN C [Concomitant]
     Active Substance: ASCORBIC ACID
  16. VITAMIN E [Concomitant]
     Active Substance: .ALPHA.-TOCOPHEROL

REACTIONS (1)
  - Aphthous ulcer [Unknown]
